FAERS Safety Report 17025557 (Version 2)
Quarter: 2019Q4

REPORT INFORMATION
  Report Type: Spontaneous
  Country: MX (occurrence: MX)
  Receive Date: 20191113
  Receipt Date: 20191129
  Transmission Date: 20200122
  Serious: No
  Sender: FDA-Public Use
  Company Number: MX-SA-2019SA313378

PATIENT
  Age: 22 Year
  Sex: Male

DRUGS (3)
  1. ALLEGRA [Suspect]
     Active Substance: FEXOFENADINE HYDROCHLORIDE
     Indication: SEASONAL ALLERGY
     Dosage: 1 TABLET/ 24 H
     Route: 048
     Dates: start: 20191105, end: 20191106
  2. PARACETAMOL [Concomitant]
     Active Substance: ACETAMINOPHEN
     Indication: SEASONAL ALLERGY
     Dosage: 1 TABLET/ 8 H
     Route: 048
     Dates: start: 20191105, end: 20191106
  3. PARACETAMOL [Concomitant]
     Active Substance: ACETAMINOPHEN
     Dosage: TOOK EXTRA DOSE
     Route: 048

REACTIONS (3)
  - Pyrexia [Recovered/Resolved]
  - Hypoaesthesia [Recovered/Resolved]
  - Oropharyngeal pain [Recovered/Resolved]

NARRATIVE: CASE EVENT DATE: 20191105
